FAERS Safety Report 22133612 (Version 5)
Quarter: 2023Q2

REPORT INFORMATION
  Report Type: Other
  Country: PK (occurrence: None)
  Receive Date: 20230324
  Receipt Date: 20230512
  Transmission Date: 20230722
  Serious: Yes (Death, Hospitalization)
  Sender: FDA-Public Use
  Company Number: PK-ROCHE-3292276

PATIENT
  Age: 57 Year
  Sex: Female
  Weight: 56.2 kg

DRUGS (2)
  1. ATEZOLIZUMAB [Suspect]
     Active Substance: ATEZOLIZUMAB
     Indication: Hepatocellular carcinoma
     Dosage: MOST RECENT DOSE : 19/FEB/2023
     Route: 041
     Dates: start: 20230219
  2. BEVACIZUMAB [Suspect]
     Active Substance: BEVACIZUMAB
     Indication: Hepatocellular carcinoma
     Route: 042
     Dates: start: 20230219

REACTIONS (5)
  - Vomiting [Recovered/Resolved]
  - Urinary tract infection [Fatal]
  - Liver function test increased [Fatal]
  - Pyrexia [Fatal]
  - Liver function test abnormal [Not Recovered/Not Resolved]

NARRATIVE: CASE EVENT DATE: 20230219
